FAERS Safety Report 8154660-2 (Version None)
Quarter: 2012Q1

REPORT INFORMATION
  Report Type: 
  Country: None (occurrence: None)
  Receive Date: 20120221
  Receipt Date: 20120216
  Transmission Date: 20120608
  Serious: Yes (Other)
  Sender: FDA-Public Use
  Company Number: US-GILEAD-2012-0051033

PATIENT
  Age: 83 Year
  Sex: Female

DRUGS (4)
  1. SILYMARIN                          /01131701/ [Concomitant]
  2. OMEPRAZOLE [Concomitant]
  3. LETAIRIS [Suspect]
     Indication: PULMONARY HYPERTENSION
     Dosage: 5 MG, UNK
     Route: 048
     Dates: start: 20111201
  4. AMLODIPINE [Concomitant]

REACTIONS (1)
  - PRURITUS [None]
